FAERS Safety Report 5263207-X (Version None)
Quarter: 2007Q1

REPORT INFORMATION
  Report Type: 
  Country: None (occurrence: None)
  Receive Date: 20061219
  Receipt Date: 20061024
  Transmission Date: 20070707
  Serious: No
  Sender: FDA-Public Use
  Company Number: 2006US002404

PATIENT
  Sex: Male

DRUGS (2)
  1. VESICARE [Suspect]
  2. FOSAMAX [Concomitant]

REACTIONS (1)
  - BLOOD POTASSIUM DECREASED [None]
